FAERS Safety Report 8341418 (Version 2)
Quarter: 2013Q2

REPORT INFORMATION
  Report Type: Spontaneous
  Country: US (occurrence: None)
  Receive Date: 20111202
  Receipt Date: 20121203
  Transmission Date: 20140414
  Serious: Yes (Hospitalization, Other)
  Sender: FDA-Public Use
  Company Number: 2011SP017556

PATIENT
  Age: 28 Year
  Sex: Female
  Weight: 86.2 kg

DRUGS (1)
  1. NUVARING (ETONOGESTREL (+) ETHINYL ESTRADIOL) VAGINAL RING [Suspect]
     Indication: CONTRACEPTION
     Route: 067
     Dates: start: 20080104

REACTIONS (2)
  - PULMONARY EMBOLISM [None]
  - Candida infection [None]
